FAERS Safety Report 8045302-5 (Version None)
Quarter: 2012Q1

REPORT INFORMATION
  Report Type: 
  Country: None (occurrence: None)
  Receive Date: 20120111
  Receipt Date: 20120111
  Transmission Date: 20120608
  Serious: Yes (Hospitalization)
  Sender: FDA-Public Use
  Company Number: None

PATIENT
  Sex: Male
  Weight: 83.5 kg

DRUGS (4)
  1. SOLIRIS [Suspect]
     Indication: PROPHYLAXIS
     Dosage: 1200 MG 3 IV : 900 MG 5 IV  : 600 MG 17 IV
     Route: 042
     Dates: start: 20111103
  2. SOLIRIS [Suspect]
     Indication: PROPHYLAXIS
     Dosage: 1200 MG 3 IV : 900 MG 5 IV  : 600 MG 17 IV
     Route: 042
     Dates: start: 20111110, end: 20111118
  3. SOLIRIS [Suspect]
     Indication: PROPHYLAXIS
     Dosage: 1200 MG 3 IV : 900 MG 5 IV  : 600 MG 17 IV
     Route: 042
     Dates: start: 20111104
  4. ECULIZUMAB [Concomitant]

REACTIONS (5)
  - HYPERVOLAEMIA [None]
  - PNEUMONIA [None]
  - ASTHENIA [None]
  - FATIGUE [None]
  - DYSPNOEA [None]
